FAERS Safety Report 8943449 (Version 1)
Quarter: 2012Q4

REPORT INFORMATION
  Report Type: 
  Country: HK (occurrence: HK)
  Receive Date: 20121204
  Receipt Date: 20121204
  Transmission Date: 20130627
  Serious: Yes (Death, Other)
  Sender: FDA-Public Use
  Company Number: PHHY2012HK111025

PATIENT
  Age: 51 Year
  Sex: Female

DRUGS (2)
  1. PREDNISOLONE SANDOZ [Suspect]
     Indication: BLISTER
     Dosage: 30 mg, per day
  2. IMMUNOGLOBULINS [Suspect]
     Indication: BLISTER
     Dosage: 24 g, ONCE/SINGLE

REACTIONS (3)
  - Palmar-plantar erythrodysaesthesia syndrome [Fatal]
  - Staphylococcal sepsis [Fatal]
  - Drug ineffective [Unknown]
